FAERS Safety Report 24101259 (Version 1)
Quarter: 2024Q3

REPORT INFORMATION
  Report Type: Spontaneous
  Country: FI (occurrence: FI)
  Receive Date: 20240717
  Receipt Date: 20240717
  Transmission Date: 20241017
  Serious: Yes (Hospitalization)
  Sender: TEVA
  Company Number: None

PATIENT
  Age: 66 Year
  Sex: Male

DRUGS (1)
  1. RISPERIDONE [Suspect]
     Active Substance: RISPERIDONE
     Indication: Behaviour disorder
     Dosage: 1X2 :RISPERIDONE RATIOPHARM
     Route: 048
     Dates: start: 20240404, end: 20240529

REACTIONS (8)
  - Dysphagia [Recovered/Resolved]
  - Neuroleptic malignant syndrome [Recovered/Resolved]
  - Restlessness [Recovered/Resolved]
  - Drooling [Recovered/Resolved]
  - Musculoskeletal stiffness [Recovered/Resolved]
  - Urinary incontinence [Recovered/Resolved]
  - Posture abnormal [Recovered/Resolved]
  - Pneumonia aspiration [Recovered/Resolved]

NARRATIVE: CASE EVENT DATE: 20240510
